FAERS Safety Report 19166839 (Version 2)
Quarter: 2021Q2

REPORT INFORMATION
  Report Type: Spontaneous
  Country: AR (occurrence: AR)
  Receive Date: 20210421
  Receipt Date: 20210505
  Transmission Date: 20210717
  Serious: Yes (Other)
  Sender: FDA-Public Use
  Company Number: AR-AMGEN-ARGSP2021052673

PATIENT
  Age: 74 Year
  Sex: Female

DRUGS (1)
  1. ENBREL [Suspect]
     Active Substance: ETANERCEPT
     Indication: RHEUMATOID ARTHRITIS
     Dosage: 50 MG, WEEKLY
     Route: 065
     Dates: start: 20140131

REACTIONS (11)
  - Arthralgia [Unknown]
  - Illness [Unknown]
  - Spinal pain [Unknown]
  - Gait inability [Unknown]
  - Dizziness [Unknown]
  - Palatal swelling [Unknown]
  - Memory impairment [Unknown]
  - Pain in extremity [Unknown]
  - Bone pain [Unknown]
  - Pain [Unknown]
  - Decreased appetite [Unknown]

NARRATIVE: CASE EVENT DATE: 202103
